FAERS Safety Report 4388530-2 (Version None)
Quarter: 2004Q2

REPORT INFORMATION
  Report Type: 
  Country: None (occurrence: None)
  Receive Date: 20040624
  Receipt Date: 20040610
  Transmission Date: 20050107
  Serious: Yes (Hospitalization)
  Sender: FDA-Public Use
  Company Number: 2004AP02153

PATIENT
  Age: 74 Year
  Sex: Male
  Weight: 48 kg

DRUGS (4)
  1. CASODEX [Suspect]
     Indication: PROSTATE CANCER
     Dosage: 80 MG DAILY PO
     Route: 048
     Dates: start: 20021101
  2. ZOLADEX [Suspect]
     Indication: PROSTATE CANCER
     Dosage: 11.3 MG Q3MO SQ
     Route: 058
     Dates: start: 20040106
  3. LEUPROLIDE ACETATE [Suspect]
     Indication: PROSTATE CANCER
     Dosage: 3.75 MG DAILY SQ
     Route: 058
     Dates: start: 20021219, end: 20030428
  4. LEUPROLIDE ACETATE [Suspect]
     Indication: PROSTATE CANCER
     Dosage: 11.25 MG DAILY SQ
     Route: 058
     Dates: start: 20030428, end: 20040106

REACTIONS (5)
  - LUMBAR VERTEBRAL FRACTURE [None]
  - OSTEOPOROSIS [None]
  - PAIN IN EXTREMITY [None]
  - SPINAL COMPRESSION FRACTURE [None]
  - THORACIC VERTEBRAL FRACTURE [None]
